FAERS Safety Report 22282877 (Version 1)
Quarter: 2023Q2

REPORT INFORMATION
  Report Type: Spontaneous
  Country: CA (occurrence: CA)
  Receive Date: 20230504
  Receipt Date: 20230504
  Transmission Date: 20230721
  Serious: Yes (Other)
  Sender: FDA-Public Use
  Company Number: CA-ORGANON-O2305CAN000171

PATIENT
  Age: 58 Year
  Sex: Female

DRUGS (4)
  1. DIPROSONE [Suspect]
     Active Substance: BETAMETHASONE DIPROPIONATE
     Indication: Pityriasis rubra pilaris
     Dosage: UNK, 2 EVERY 1 DAYS (DOSAGE FORM : NOT SPECIFIED)
     Route: 065
  2. ACITRETIN [Suspect]
     Active Substance: ACITRETIN
     Indication: Pityriasis rubra pilaris
     Dosage: 10 MILLIGRAM,  1 EVERY 1 DAYS (DOSAGE FORM : NOT SPECIFIED)
     Route: 065
  3. ACITRETIN [Suspect]
     Active Substance: ACITRETIN
     Dosage: 20 MILLIGRAM,  1 EVERY 1 DAYS (DOSAGE FORM : NOT SPECIFIED)
     Route: 065
  4. ACITRETIN [Suspect]
     Active Substance: ACITRETIN
     Dosage: 10 MILLIGRAM,  1 EVERY 1 DAYS (DOSAGE FORM : NOT SPECIFIED)
     Route: 065

REACTIONS (6)
  - Chills [Unknown]
  - Dermatitis exfoliative generalised [Unknown]
  - Disease progression [Unknown]
  - Pruritus [Unknown]
  - Skin tightness [Unknown]
  - Sticky skin [Unknown]
